FAERS Safety Report 6095969-6 (Version None)
Quarter: 2009Q1

REPORT INFORMATION
  Report Type: 
  Country: None (occurrence: None)
  Receive Date: 20090227
  Receipt Date: 20080728
  Transmission Date: 20090719
  Serious: No
  Sender: FDA-Public Use
  Company Number: A0739776A

PATIENT
  Sex: Female

DRUGS (2)
  1. LAMICTAL [Suspect]
     Dosage: 200MG PER DAY
  2. AMBIEN [Concomitant]

REACTIONS (4)
  - CYSTITIS [None]
  - MICTURITION URGENCY [None]
  - URINARY RETENTION [None]
  - URINARY TRACT INFECTION [None]
